FAERS Safety Report 18023103 (Version 1)
Quarter: 2020Q3

REPORT INFORMATION
  Report Type: Spontaneous
  Country: FR (occurrence: FR)
  Receive Date: 20200714
  Receipt Date: 20200714
  Transmission Date: 20201103
  Serious: Yes (Death, Life-Threatening, Hospitalization)
  Sender: FDA-Public Use
  Company Number: FR-009507513-2007FRA004395

PATIENT
  Age: 76 Year
  Sex: Female
  Weight: 77 kg

DRUGS (3)
  1. ORAMORPH [Concomitant]
     Active Substance: MORPHINE SULFATE
     Dosage: UNK
  2. KEYTRUDA [Suspect]
     Active Substance: PEMBROLIZUMAB
     Indication: LUNG ADENOCARCINOMA
     Dosage: 200 MILLIGRAM, ONCE
     Route: 042
     Dates: start: 20190612
  3. CEFTRIAXONE SODIUM. [Concomitant]
     Active Substance: CEFTRIAXONE SODIUM
     Dosage: UNK

REACTIONS (3)
  - Oxygen saturation decreased [Fatal]
  - Confusional state [Fatal]
  - Death [Fatal]

NARRATIVE: CASE EVENT DATE: 20190612
